FAERS Safety Report 8150927-2 (Version None)
Quarter: 2012Q1

REPORT INFORMATION
  Report Type: 
  Country: None (occurrence: None)
  Receive Date: 20120220
  Receipt Date: 20120213
  Transmission Date: 20120608
  Serious: Yes (Death, Life-Threatening, Hospitalization)
  Sender: FDA-Public Use
  Company Number: GB-BAYER-2012-004851

PATIENT
  Age: 25 Year
  Sex: Female

DRUGS (3)
  1. CYCLIZINE [Concomitant]
     Dosage: 50 MG, TID
     Route: 048
     Dates: end: 20120111
  2. TINZAPARIN [Concomitant]
     Dosage: 12000 IU, QD
     Route: 058
  3. NEXAVAR [Suspect]
     Indication: HEPATIC NEOPLASM MALIGNANT
     Dosage: 400 MG, BID
     Route: 048
     Dates: start: 20120103, end: 20120111

REACTIONS (20)
  - DYSKINESIA [None]
  - MUSCLE TWITCHING [None]
  - ACUTE HEPATIC FAILURE [None]
  - SMALL INTESTINAL OBSTRUCTION [None]
  - HYPOTONIA [None]
  - EYE MOVEMENT DISORDER [None]
  - NAUSEA [None]
  - CHOREA [None]
  - BODY TEMPERATURE INCREASED [None]
  - HEPATIC ENCEPHALOPATHY [None]
  - DECREASED APPETITE [None]
  - SPEECH DISORDER [None]
  - PROTRUSION TONGUE [None]
  - DEPRESSED LEVEL OF CONSCIOUSNESS [None]
  - DISSOCIATION [None]
  - HYPERTONIA [None]
  - APHASIA [None]
  - UNRESPONSIVE TO STIMULI [None]
  - LOSS OF CONSCIOUSNESS [None]
  - FEELING ABNORMAL [None]
